FAERS Safety Report 9649345 (Version 5)
Quarter: 2014Q4

REPORT INFORMATION
  Report Type: Spontaneous
  Country: FR (occurrence: FR)
  Receive Date: 20131028
  Receipt Date: 20141030
  Transmission Date: 20150529
  Serious: Yes (Hospitalization)
  Sender: FDA-Public Use
  Company Number: FR-PFIZER INC-2013301321

PATIENT
  Age: 49 Year
  Sex: Female
  Weight: 52 kg

DRUGS (10)
  1. BACLOFENE, ZENTIVA [Interacting]
     Active Substance: BACLOFEN
     Indication: ALCOHOLISM
     Dosage: 120 MG, DAILY
     Route: 048
     Dates: start: 201302, end: 2013
  2. BACLOFENE, ZENTIVA [Interacting]
     Active Substance: BACLOFEN
     Dosage: 100 MG, DAILY
     Route: 048
     Dates: start: 201303, end: 2013
  3. STILNOX [Suspect]
     Active Substance: ZOLPIDEM TARTRATE
     Indication: INSOMNIA
     Dosage: 10 MG, DAILY
     Route: 048
  4. BACLOFEN. [Interacting]
     Active Substance: BACLOFEN
     Dosage: UNK
     Dates: start: 201208
  5. BACLOFENE, ZENTIVA [Interacting]
     Active Substance: BACLOFEN
     Dosage: 120 MG, DAILY
     Route: 048
     Dates: start: 201308
  6. BACLOFEN. [Interacting]
     Active Substance: BACLOFEN
     Dosage: 50 MG, DAILY
  7. MIANSERIN [Suspect]
     Active Substance: MIANSERIN
     Indication: DEPRESSION
     Dosage: 30 MG, DAILY
     Route: 048
  8. BACLOFEN. [Interacting]
     Active Substance: BACLOFEN
     Dosage: 4 TABLETS IN THE MORNINGS, AT MID-DAYS AND IN THE EVENINGS
  9. XANAX [Suspect]
     Active Substance: ALPRAZOLAM
     Indication: DEPRESSION
     Dosage: UNK, AS NEEDED
     Route: 048
  10. BACLOFEN. [Interacting]
     Active Substance: BACLOFEN
     Dosage: 2 TABLETS IN THE MORNING, ONE AT MIDDAY AND TWO IN THE EVENING

REACTIONS (12)
  - Off label use [Not Recovered/Not Resolved]
  - Paraesthesia [Recovered/Resolved]
  - Bradycardia [Recovered/Resolved]
  - Electroencephalogram abnormal [Unknown]
  - Subcutaneous haematoma [Recovered/Resolved]
  - Vision blurred [Recovered/Resolved]
  - Confusional state [Recovered/Resolved]
  - Drug interaction [Recovered/Resolved]
  - Asthenia [Recovered/Resolved]
  - Malaise [Unknown]
  - Feeling drunk [Recovered/Resolved]
  - Fall [Recovered/Resolved]

NARRATIVE: CASE EVENT DATE: 201208
